FAERS Safety Report 8006960-4 (Version None)
Quarter: 2011Q4

REPORT INFORMATION
  Report Type: 
  Country: None (occurrence: None)
  Receive Date: 20111219
  Receipt Date: 20111207
  Transmission Date: 20120403
  Serious: Yes (Death)
  Sender: FDA-Public Use
  Company Number: THYM-1001085

PATIENT
  Age: 35 Year
  Sex: Male
  Weight: 59 kg

DRUGS (15)
  1. THYMOGLOBULIN [Suspect]
     Indication: APLASTIC ANAEMIA
     Dosage: 200 MG, QD, INTRAVENOUS
     Route: 042
     Dates: start: 20090625, end: 20090627
  2. CYCLOSPORINE [Concomitant]
  3. URSODIOL [Concomitant]
  4. CLOSTRIDIUM BUTYRICUM (CLOSTRIDIUM BUTYRICUM) [Concomitant]
  5. SODIUM GUALENATE (SODIUM GUALENATE) [Concomitant]
  6. CEFEPIME HYDROCHLORIDE [Concomitant]
  7. DOBUTAMINE HCL [Concomitant]
  8. PREDNISOLONE SODIUM SUCCINATE INJ [Concomitant]
  9. MICAFUNGIN SODIUM (MICAFUNGIN SODIUM) [Concomitant]
  10. MEROPENEM [Concomitant]
  11. LANSOPRAZOLE [Concomitant]
  12. ACETAMINOPHEN [Concomitant]
  13. METHYLPREDNISOLONE [Concomitant]
  14. FILGRASTIM (FILGRASTIM) [Concomitant]
  15. SENNOSIDE (SENNOSIDE A+B CALCIUM) [Concomitant]

REACTIONS (18)
  - CHILLS [None]
  - INTRA-ABDOMINAL HAEMORRHAGE [None]
  - TOXICITY TO VARIOUS AGENTS [None]
  - RENAL FAILURE ACUTE [None]
  - ELECTROCARDIOGRAM QRS COMPLEX PROLONGED [None]
  - GASTROINTESTINAL HAEMORRHAGE [None]
  - SEPSIS [None]
  - NEUTROPENIA [None]
  - DIARRHOEA [None]
  - CARDIOTOXICITY [None]
  - GASTROINTESTINAL NECROSIS [None]
  - PYREXIA [None]
  - SHOCK HAEMORRHAGIC [None]
  - HYPOVOLAEMIC SHOCK [None]
  - CARDIAC ARREST [None]
  - NAUSEA [None]
  - CARDIOMYOPATHY [None]
  - BLOOD POTASSIUM INCREASED [None]
